FAERS Safety Report 12202772 (Version 2)
Quarter: 2016Q2

REPORT INFORMATION
  Report Type: Spontaneous
  Country: JP (occurrence: JP)
  Receive Date: 20160323
  Receipt Date: 20160420
  Transmission Date: 20160815
  Serious: Yes (Hospitalization, Other)
  Sender: FDA-Public Use
  Company Number: JP-TAKEDA-2016TJP005335

PATIENT
  Age: 75 Year
  Sex: Male
  Weight: 64 kg

DRUGS (3)
  1. NESINA [Suspect]
     Active Substance: ALOGLIPTIN BENZOATE
     Indication: BLOOD GLUCOSE ABNORMAL
     Dosage: 25 MG, QD
     Route: 048
     Dates: end: 20160219
  2. GLIMICRON [Concomitant]
     Active Substance: GLICLAZIDE
     Indication: BLOOD GLUCOSE ABNORMAL
     Dosage: 40 MG, QD
     Route: 048
  3. BASEN                              /01290601/ [Concomitant]
     Active Substance: VOGLIBOSE
     Dosage: 0.2 MG, TID
     Route: 048

REACTIONS (1)
  - Rhabdomyolysis [Recovered/Resolved]

NARRATIVE: CASE EVENT DATE: 20160216
